FAERS Safety Report 5939294-X (Version None)
Quarter: 2008Q4

REPORT INFORMATION
  Report Type: 
  Country: None (occurrence: None)
  Receive Date: 20081103
  Receipt Date: 20081027
  Transmission Date: 20090506
  Serious: Yes (Death, Hospitalization)
  Sender: FDA-Public Use
  Company Number: AU-AMGEN-US310919

PATIENT
  Sex: Male

DRUGS (15)
  1. ENBREL [Suspect]
     Indication: PUSTULAR PSORIASIS
     Dosage: PRE-FILLED SYRINGE (50MG ONCE A WEEK)
     Route: 058
     Dates: start: 20030101
  2. RANITIDINE [Suspect]
     Route: 065
  3. GAVISCON [Suspect]
     Route: 065
  4. VENTOLIN [Suspect]
     Route: 055
  5. AMPHOTERICIN B [Suspect]
     Dosage: UNKNOWN
     Route: 065
     Dates: start: 20080101, end: 20080101
  6. AMPHOTERICIN B [Suspect]
     Dosage: UNKNOWN
     Dates: start: 20080101, end: 20080101
  7. AMPHOTERICIN B [Suspect]
     Dosage: UNKNOWN
     Dates: start: 20080101, end: 20080101
  8. PREDNISOLONE [Suspect]
     Route: 065
  9. MEPERIDINE HCL [Suspect]
     Route: 065
  10. SUSTANON [Suspect]
     Route: 065
  11. VITAMIN B12 [Suspect]
     Route: 065
  12. DIAZEPAM [Suspect]
     Route: 065
  13. PANAMAX [Suspect]
     Route: 065
  14. ROXITHROMYCIN [Suspect]
     Route: 065
  15. UNSPECIFIED ANALGESIC [Concomitant]
     Route: 042

REACTIONS (4)
  - NONSPECIFIC REACTION [None]
  - ORAL CANDIDIASIS [None]
  - PULMONARY FIBROSIS [None]
  - RESPIRATORY FAILURE [None]
